FAERS Safety Report 13303140 (Version 1)
Quarter: 2017Q1

REPORT INFORMATION
  Report Type: Spontaneous
  Country: US (occurrence: US)
  Receive Date: 20170307
  Receipt Date: 20170307
  Transmission Date: 20170428
  Serious: Yes (Death, Other)
  Sender: FDA-Public Use
  Company Number: US-009507513-1703USA002846

PATIENT
  Sex: Female

DRUGS (1)
  1. JANUVIA [Suspect]
     Active Substance: SITAGLIPTIN PHOSPHATE
     Indication: PRODUCT USED FOR UNKNOWN INDICATION
     Dosage: UNK UNK, UNKNOWN
     Route: 065
     Dates: start: 201408, end: 201502

REACTIONS (1)
  - Pancreatic carcinoma [Fatal]

NARRATIVE: CASE EVENT DATE: 201501
